FAERS Safety Report 18434259 (Version 1)
Quarter: 2020Q4

REPORT INFORMATION
  Report Type: Report from Study
  Country: None (occurrence: DE)
  Receive Date: 20201027
  Receipt Date: 20201027
  Transmission Date: 20210114
  Serious: Yes (Other)
  Sender: FDA-Public Use
  Company Number: DE-ABBVIE-20K-062-3622162-00

PATIENT
  Age: 30 Year
  Sex: Female
  Weight: 85 kg

DRUGS (1)
  1. HUMIRA [Suspect]
     Active Substance: ADALIMUMAB
     Indication: HIDRADENITIS
     Route: 058
     Dates: start: 20190131, end: 20191218

REACTIONS (8)
  - Rib fracture [Recovering/Resolving]
  - Pneumonia [Recovered/Resolved]
  - Blood test abnormal [Recovering/Resolving]
  - Psoriasis [Not Recovered/Not Resolved]
  - Lung disorder [Not Recovered/Not Resolved]
  - Inflammatory marker increased [Recovered/Resolved]
  - Alopecia [Recovered/Resolved]
  - Leukaemia [Recovering/Resolving]

NARRATIVE: CASE EVENT DATE: 201910
